FAERS Safety Report 8852126 (Version 1)
Quarter: 2012Q4

REPORT INFORMATION
  Report Type: 
  Country: FR (occurrence: FR)
  Receive Date: 20121022
  Receipt Date: 20121022
  Transmission Date: 20130627
  Serious: Yes (Hospitalization, Other)
  Sender: FDA-Public Use
  Company Number: FR-PFIZER INC-2012257098

PATIENT
  Age: 53 Year
  Sex: Female
  Weight: 50 kg

DRUGS (1)
  1. SUTENT [Suspect]
     Indication: RENAL CANCER METASTATIC
     Dosage: 1 DF, weekly
     Route: 048
     Dates: start: 201205, end: 20120712

REACTIONS (22)
  - Pancytopenia [Recovering/Resolving]
  - Hypothyroidism [Recovering/Resolving]
  - Oral pain [Recovering/Resolving]
  - Asthenia [Recovering/Resolving]
  - Pulmonary embolism [Unknown]
  - Urinary tract infection [Unknown]
  - Aphagia [Unknown]
  - Odynophagia [Unknown]
  - Orthostatic hypotension [Unknown]
  - Herpes virus infection [Unknown]
  - Mouth haemorrhage [Unknown]
  - Xeroderma [Unknown]
  - Weight decreased [Unknown]
  - Conjunctival hyperaemia [Unknown]
  - Epistaxis [Unknown]
  - Cheilitis [Unknown]
  - Hypoalbuminaemia [Unknown]
  - Blood culture positive [Unknown]
  - Blood sodium decreased [Unknown]
  - Hypocalcaemia [Unknown]
  - Hypophosphataemia [Unknown]
  - Blood magnesium decreased [Unknown]
